FAERS Safety Report 7026730-3 (Version None)
Quarter: 2010Q4

REPORT INFORMATION
  Report Type: 
  Country: None (occurrence: None)
  Receive Date: 20101004
  Receipt Date: 20100924
  Transmission Date: 20110411
  Serious: Yes (Hospitalization)
  Sender: FDA-Public Use
  Company Number: US-AMGEN-KDL441080

PATIENT
  Sex: Female

DRUGS (2)
  1. ENBREL [Suspect]
     Indication: RHEUMATOID ARTHRITIS
     Route: 058
     Dates: start: 20050920
  2. ENBREL [Suspect]
     Indication: PSORIASIS

REACTIONS (7)
  - ASTHENIA [None]
  - HYPOKINESIA [None]
  - INJECTION SITE PAIN [None]
  - NAUSEA [None]
  - ONYCHOMADESIS [None]
  - TOOTH DISORDER [None]
  - VOMITING [None]
